FAERS Safety Report 17968237 (Version 1)
Quarter: 2020Q3

REPORT INFORMATION
  Report Type: Spontaneous
  Country: US (occurrence: US)
  Receive Date: 20200701
  Receipt Date: 20200701
  Transmission Date: 20201103
  Serious: No
  Sender: FDA-Public Use
  Company Number: None

PATIENT
  Age: 61 Year
  Sex: Female
  Weight: 72 kg

DRUGS (1)
  1. EUTHYROX [Suspect]
     Active Substance: LEVOTHYROXINE SODIUM
     Indication: THYROID HORMONES DECREASED
     Dosage: ?          QUANTITY:1 TABLET(S);?
     Route: 048
     Dates: start: 20200601, end: 20200630

REACTIONS (7)
  - Insomnia [None]
  - Night sweats [None]
  - Dizziness [None]
  - Headache [None]
  - Heart rate increased [None]
  - Product substitution issue [None]
  - Tinnitus [None]

NARRATIVE: CASE EVENT DATE: 20200601
